FAERS Safety Report 5839246-4 (Version None)
Quarter: 2008Q3

REPORT INFORMATION
  Report Type: 
  Country: None (occurrence: None)
  Receive Date: 20080808
  Receipt Date: 20080729
  Transmission Date: 20090109
  Serious: Yes (Death)
  Sender: FDA-Public Use
  Company Number: JP-PFIZER INC-2008060498

PATIENT
  Sex: Female
  Weight: 57.2 kg

DRUGS (43)
  1. POLYMYXIN B SULFATE [Suspect]
     Indication: THERMAL BURN
     Route: 061
  2. CEFAMEZIN IV [Suspect]
     Indication: AIRWAY BURNS
     Route: 042
     Dates: start: 20050827, end: 20050903
  3. VANCOMYCIN HYDROCHLORIDE [Suspect]
     Route: 042
     Dates: start: 20050916, end: 20050919
  4. VANCOMYCIN HYDROCHLORIDE [Suspect]
     Route: 042
     Dates: start: 20050910, end: 20050913
  5. KETAMINE HYDROCHLORIDE [Suspect]
     Indication: SEDATION
     Route: 042
     Dates: start: 20050902, end: 20050903
  6. KETAMINE HYDROCHLORIDE [Suspect]
     Route: 042
     Dates: start: 20050921, end: 20050922
  7. KETAMINE HYDROCHLORIDE [Suspect]
     Route: 042
     Dates: start: 20050926, end: 20050927
  8. FENTANEST [Suspect]
     Indication: SEDATION
     Route: 042
     Dates: start: 20050912, end: 20050912
  9. FENTANEST [Suspect]
     Route: 042
     Dates: start: 20050914, end: 20050920
  10. SOLDACTONE INJECTION [Suspect]
     Indication: DIURETIC THERAPY
     Route: 042
     Dates: start: 20050910, end: 20050912
  11. SOLDACTONE INJECTION [Suspect]
     Route: 042
     Dates: start: 20050914, end: 20050917
  12. ATROPINE SULFATE [Suspect]
     Route: 042
     Dates: start: 20050912, end: 20050912
  13. PERDIPINE [Suspect]
     Indication: HYPERTENSION
     Route: 048
  14. PERDIPINE [Suspect]
     Route: 042
     Dates: start: 20050827, end: 20050903
  15. MIDAZOLAM HCL [Suspect]
     Indication: SEDATION
     Route: 042
     Dates: start: 20050827, end: 20050901
  16. MIDAZOLAM HCL [Suspect]
     Route: 042
     Dates: start: 20050916, end: 20050916
  17. MIDAZOLAM HCL [Suspect]
     Route: 042
     Dates: start: 20050924, end: 20050929
  18. FAMOTIDINE [Suspect]
     Dosage: TEXT:1 DF
     Route: 042
     Dates: start: 20050827, end: 20050903
  19. FAMOTIDINE [Suspect]
     Route: 048
     Dates: start: 20050904, end: 20050920
  20. TARGOCID [Suspect]
     Route: 042
     Dates: start: 20050903, end: 20050909
  21. HUMULIN R [Suspect]
     Route: 042
     Dates: start: 20050927, end: 20050929
  22. DIPRIVAN [Suspect]
     Indication: SEDATION
     Route: 042
     Dates: start: 20050927, end: 20050928
  23. MODACIN [Suspect]
     Route: 042
     Dates: start: 20050910, end: 20050917
  24. VITAMIN B COMPLEX CAP [Suspect]
     Indication: VITAMIN SUPPLEMENTATION
     Dosage: TEXT:1 DF
     Route: 042
     Dates: start: 20050828, end: 20050903
  25. VITAMIN B COMPLEX CAP [Suspect]
     Dosage: TEXT:1 DF
     Route: 042
     Dates: start: 20050913, end: 20050913
  26. VISCORIN [Suspect]
     Indication: VITAMIN SUPPLEMENTATION
     Route: 042
     Dates: start: 20050828, end: 20050903
  27. VISCORIN [Suspect]
     Route: 042
     Dates: start: 20050913, end: 20050913
  28. PANTOL [Suspect]
     Indication: VITAMIN SUPPLEMENTATION
     Route: 042
     Dates: start: 20050902, end: 20050903
  29. PANTOL [Suspect]
     Route: 042
     Dates: start: 20050906, end: 20050920
  30. CALCICOL [Suspect]
     Indication: MINERAL SUPPLEMENTATION
     Route: 042
     Dates: start: 20050902, end: 20050902
  31. POTASSIUM CHLORIDE [Suspect]
     Indication: MINERAL SUPPLEMENTATION
     Dosage: TEXT:1 DF
     Route: 042
     Dates: start: 20050901, end: 20050903
  32. POTASSIUM CHLORIDE [Suspect]
     Dosage: TEXT:1 DF
     Route: 042
     Dates: start: 20050906, end: 20050906
  33. POTASSIUM CHLORIDE [Suspect]
     Dosage: TEXT:1 DF
     Route: 042
     Dates: start: 20050909, end: 20050912
  34. LASIX [Suspect]
     Indication: DIURETIC THERAPY
     Route: 042
     Dates: start: 20050831, end: 20050920
  35. LASIX [Suspect]
     Route: 042
     Dates: start: 20050925, end: 20050925
  36. LAC B [Suspect]
     Route: 048
     Dates: start: 20050831, end: 20050912
  37. LAC B [Suspect]
     Route: 048
     Dates: start: 20050914, end: 20050929
  38. SEPAMIT [Suspect]
     Indication: HYPERTENSION
     Route: 048
     Dates: start: 20050903, end: 20050912
  39. SEPAMIT [Suspect]
     Route: 048
     Dates: start: 20050914, end: 20050920
  40. VECURONIUM BROMIDE [Suspect]
     Indication: MUSCLE RELAXANT THERAPY
     Route: 042
     Dates: start: 20050912, end: 20050912
  41. NEOSTIGMINE [Suspect]
     Route: 042
     Dates: start: 20050912, end: 20050912
  42. NITROUS OXIDE [Suspect]
     Indication: ANAESTHESIA PROCEDURE
     Route: 055
     Dates: start: 20050912, end: 20050912
  43. SEVOFLURANE [Suspect]
     Indication: ANAESTHESIA PROCEDURE
     Route: 055
     Dates: start: 20050912, end: 20050912

REACTIONS (1)
  - TOXIC EPIDERMAL NECROLYSIS [None]
